FAERS Safety Report 24536548 (Version 5)
Quarter: 2025Q1

REPORT INFORMATION
  Report Type: Spontaneous
  Country: US (occurrence: US)
  Receive Date: 20241022
  Receipt Date: 20250205
  Transmission Date: 20250408
  Serious: No
  Sender: SANOFI AVENTIS
  Company Number: US-SA-2024SA299883

PATIENT
  Age: 16 Year
  Sex: Male
  Weight: 49.09 kg

DRUGS (10)
  1. CEREZYME [Suspect]
     Active Substance: IMIGLUCERASE
     Indication: Gaucher^s disease
     Dosage: 2800 IU, QOW
     Route: 042
     Dates: start: 201912
  2. CEREZYME [Suspect]
     Active Substance: IMIGLUCERASE
     Dosage: 3200 U, QOW
     Route: 042
     Dates: start: 2024
  3. CEREZYME [Suspect]
     Active Substance: IMIGLUCERASE
     Dosage: 2800 IU, QOW
     Route: 042
  4. IBUPROFEN [Concomitant]
     Active Substance: IBUPROFEN
  5. STERILE WATER [Concomitant]
     Active Substance: WATER
  6. SODIUM CHLORIDE [Concomitant]
     Active Substance: SODIUM CHLORIDE
  7. EPINEPHRINE [Concomitant]
     Active Substance: EPINEPHRINE
  8. CETIRIZINE HCL [Concomitant]
     Active Substance: CETIRIZINE HYDROCHLORIDE
  9. HEPARIN [Concomitant]
     Active Substance: HEPARIN SODIUM
  10. BANOPHEN [Concomitant]
     Active Substance: DIPHENHYDRAMINE HYDROCHLORIDE

REACTIONS (3)
  - Pain in extremity [Unknown]
  - Weight increased [Unknown]
  - Weight decreased [Unknown]

NARRATIVE: CASE EVENT DATE: 20240101
